FAERS Safety Report 4806844-6 (Version None)
Quarter: 2005Q4

REPORT INFORMATION
  Report Type: 
  Country: None (occurrence: None)
  Receive Date: 20051019
  Receipt Date: 20050930
  Transmission Date: 20060501
  Serious: Yes (Life-Threatening, Other)
  Sender: FDA-Public Use
  Company Number: JP_050907624

PATIENT
  Age: 52 Year
  Sex: Female

DRUGS (5)
  1. ZYPREXA [Suspect]
     Indication: SCHIZOPHRENIA
     Dosage: 20 MG/1 AT BEDTIME
     Route: 048
  2. RISPERDAL [Concomitant]
  3. TASMOLIN             (BIPERIDEN) [Concomitant]
  4. DORAL [Concomitant]
  5. PURSENNID [Concomitant]

REACTIONS (2)
  - GASTRIC CANCER [None]
  - RETROPERITONEAL FIBROSIS [None]
